FAERS Safety Report 10521986 (Version 1)
Quarter: 2014Q4

REPORT INFORMATION
  Report Type: Spontaneous
  Country: FR (occurrence: None)
  Receive Date: 20141014
  Receipt Date: 20141014
  Transmission Date: 20150528
  Serious: Yes (Hospitalization)
  Sender: FDA-Public Use
  Company Number: FR-20140325

PATIENT
  Age: 46 Year
  Sex: Female

DRUGS (1)
  1. DOTAREM [Suspect]
     Active Substance: GADOTERATE MEGLUMINE
     Indication: NUCLEAR MAGNETIC RESONANCE IMAGING BRAIN
     Dosage: (8 ML, 1 IN 1 D)
     Dates: start: 20140910, end: 20140910

REACTIONS (2)
  - Erythema [None]
  - Pruritus [None]

NARRATIVE: CASE EVENT DATE: 20140910
